FAERS Safety Report 14695246 (Version 2)
Quarter: 2018Q2

REPORT INFORMATION
  Report Type: Report from Study
  Country: US (occurrence: US)
  Receive Date: 20180329
  Receipt Date: 20180516
  Transmission Date: 20180711
  Serious: Yes (Other)
  Sender: FDA-Public Use
  Company Number: US-ACTELION-A-NJ2018-169678

PATIENT
  Age: 64 Year
  Sex: Female

DRUGS (1)
  1. UPTRAVI [Suspect]
     Active Substance: SELEXIPAG
     Indication: PULMONARY ARTERIAL HYPERTENSION
     Dosage: UNK
     Route: 048
     Dates: start: 20170721

REACTIONS (4)
  - Asthenia [Unknown]
  - Tibia fracture [Unknown]
  - Fibula fracture [Unknown]
  - Weight increased [Unknown]

NARRATIVE: CASE EVENT DATE: 2018
